FAERS Safety Report 4899715-0 (Version None)
Quarter: 2006Q1

REPORT INFORMATION
  Report Type: 
  Country: None (occurrence: None)
  Receive Date: 20060131
  Receipt Date: 20060123
  Transmission Date: 20060701
  Serious: Yes (Disabling)
  Sender: FDA-Public Use
  Company Number: TPA2005A01731

PATIENT
  Sex: Female

DRUGS (7)
  1. ACTOS [Suspect]
     Dosage: 45 MG, 1 IN 1 D; PER ORAL
     Route: 048
  2. NORMODYNE [Concomitant]
  3. DIOVAN HCT (VALSARTAN) [Concomitant]
  4. GLYBURDIE (GLIBENCLAMIDE) [Concomitant]
  5. MICRONASE (GLIBENCLAMIDE) (5 MILLIGRAM) [Concomitant]
  6. ADVAIR DISKUS (SERETIDE MITE) [Concomitant]
  7. ALBUTEROL INHALER (SALBUTAMOL) (INHALANT) [Concomitant]

REACTIONS (1)
  - BACK DISORDER [None]
